FAERS Safety Report 12153204 (Version 1)
Quarter: 2016Q1

REPORT INFORMATION
  Report Type: Spontaneous
  Country: CH (occurrence: CH)
  Receive Date: 20160305
  Receipt Date: 20160305
  Transmission Date: 20160526
  Serious: Yes (Hospitalization)
  Sender: FDA-Public Use
  Company Number: CH-UCBSA-2016007778

PATIENT
  Age: 83 Year
  Sex: Female

DRUGS (6)
  1. ELTROXIN [Concomitant]
     Active Substance: LEVOTHYROXINE
     Indication: PRODUCT USED FOR UNKNOWN INDICATION
     Dosage: 0.1 MG, ONCE DAILY (QD)
  2. PANADOL [Suspect]
     Active Substance: ACETAMINOPHEN
     Indication: PROCEDURAL PAIN
     Dosage: UNK, 3 TIMES
     Route: 048
     Dates: end: 201402
  3. RENNIE [Suspect]
     Active Substance: MAGNESIUM CARBONATE
     Indication: GASTRITIS PROPHYLAXIS
     Dosage: UNK, THREE TIMES
     Route: 048
  4. BETAHISTIN [Concomitant]
     Indication: PRODUCT USED FOR UNKNOWN INDICATION
     Dosage: 16 MG, ONCE DAILY (QD)
  5. OMEPRAZOLE. [Suspect]
     Active Substance: OMEPRAZOLE
     Indication: GASTRITIS PROPHYLAXIS
     Dosage: UNK
     Route: 048
     Dates: start: 20140123, end: 201402
  6. MEPHADOLOR [Suspect]
     Active Substance: MEFENAMIC ACID
     Indication: PROCEDURAL PAIN
     Dosage: UNK, SEVERAL TIMES
     Route: 048
     Dates: start: 20140123, end: 201402

REACTIONS (1)
  - Acute generalised exanthematous pustulosis [Recovered/Resolved]

NARRATIVE: CASE EVENT DATE: 201401
